FAERS Safety Report 7768741-6 (Version None)
Quarter: 2011Q3

REPORT INFORMATION
  Report Type: 
  Country: None (occurrence: None)
  Receive Date: 20110922
  Receipt Date: 20100914
  Transmission Date: 20111222
  Serious: No
  Sender: FDA-Public Use
  Company Number: US-ASTRAZENECA-2010SE43116

PATIENT
  Sex: Female

DRUGS (5)
  1. LEVOTHYROXINE SODIUM [Concomitant]
  2. ATENOLOL [Concomitant]
  3. SEROQUEL [Suspect]
     Route: 048
     Dates: start: 20081101
  4. HYDROCHLOROTHIAZIDE [Concomitant]
  5. SEROQUEL [Suspect]
     Route: 048

REACTIONS (3)
  - INSOMNIA [None]
  - AGITATION [None]
  - INCORRECT DOSE ADMINISTERED [None]
